FAERS Safety Report 8474561-X (Version None)
Quarter: 2012Q2

REPORT INFORMATION
  Report Type: 
  Country: None (occurrence: None)
  Receive Date: 20120628
  Receipt Date: 20120620
  Transmission Date: 20120825
  Serious: Yes (Hospitalization)
  Sender: FDA-Public Use
  Company Number: US-BAYER-2012-062641

PATIENT
  Age: 29 Year
  Sex: Female
  Weight: 45.351 kg

DRUGS (5)
  1. STEROID INJECTIONS [Concomitant]
     Indication: ECZEMA
     Dosage: MONTHLY
  2. ZOFRAN [Concomitant]
     Dosage: 4 MG, UNK
     Dates: start: 20110613
  3. BENTYL [Concomitant]
     Dosage: 20 MG, UNK
  4. YAZ [Suspect]
     Indication: CONTRACEPTION
  5. DROSPIRENONE AND ETHINYL ESTRADIOL [Suspect]

REACTIONS (2)
  - PULMONARY EMBOLISM [None]
  - VENA CAVA THROMBOSIS [None]
